FAERS Safety Report 8259314-X (Version None)
Quarter: 2012Q2

REPORT INFORMATION
  Report Type: 
  Country: None (occurrence: None)
  Receive Date: 20120404
  Receipt Date: 20120328
  Transmission Date: 20120825
  Serious: Yes (Other)
  Sender: FDA-Public Use
  Company Number: US-BAYER-2012-031902

PATIENT
  Age: 62 Year
  Sex: Male
  Weight: 86 kg

DRUGS (32)
  1. CRESTOR [Concomitant]
     Dosage: 10 MG, ONCE
  2. CORDARONE [Concomitant]
     Dosage: 200 MG, ONCE
  3. FACTOR VII [Concomitant]
     Dosage: 8 U
     Dates: start: 20060928, end: 20060928
  4. TRASYLOL [Suspect]
     Dosage: 200 ML PUMP PRIME
     Dates: start: 20060927, end: 20060927
  5. ASPIRIN [Concomitant]
     Dosage: 325 MG, ONCE
  6. PLASMA [Concomitant]
     Dosage: 5 U
     Route: 042
     Dates: start: 20060928, end: 20060928
  7. AMICAR [Concomitant]
     Dosage: UNK
     Dates: start: 20060927
  8. VASOTEC [Concomitant]
     Dosage: 5 MG, BID
  9. PLATELETS [Concomitant]
     Dosage: 60 U, UNK
     Dates: start: 20060927, end: 20060927
  10. VANCOMYCIN [Concomitant]
     Dosage: UNK
     Dates: start: 20060927, end: 20060927
  11. PLATELETS [Concomitant]
     Dosage: 60 U
     Dates: start: 20060928, end: 20060928
  12. CRYOPRECIPITATES [Concomitant]
     Dosage: 20 U, UNK
     Dates: start: 20060927, end: 20060927
  13. TRASYLOL [Suspect]
     Indication: HEART TRANSPLANT
     Dosage: 1 ML TEST DOSE, 200 ML LOAD FOLLOWED BY 50 CC/HR CONTINUOUS
     Route: 042
     Dates: start: 20060927, end: 20060927
  14. SYNTHROID [Concomitant]
     Dosage: 0.075 MG, ONCE
  15. ACTOS [Concomitant]
     Dosage: 22.5 MG, ONCE
  16. ZETIA [Concomitant]
  17. HEPARIN [Concomitant]
     Dosage: UNK
     Dates: start: 20060927, end: 20060927
  18. PLASMA [Concomitant]
     Dosage: 7 U, UNK
     Route: 042
     Dates: start: 20060927, end: 20060927
  19. DIGOXIN [Concomitant]
     Dosage: 0.125 MG, ONCE
  20. AMARYL [Concomitant]
     Dosage: 4 MG, UNK
  21. XANAX [Concomitant]
     Dosage: 0.25 MG, ONCE
  22. RED BLOOD CELLS [Concomitant]
     Dosage: 10 U, UNK
     Route: 042
     Dates: start: 20060927, end: 20060927
  23. ALDACTONE [Concomitant]
     Dosage: 5 MG, ONCE
  24. TRICOR [Concomitant]
     Dosage: 145 MG, ONCE
  25. COREG [Concomitant]
     Dosage: 25 MG, BID
  26. CARDIOPLEGIA [Concomitant]
     Dosage: UNK
     Dates: start: 20060927, end: 20060927
  27. MILRINONE [Concomitant]
     Dosage: UNK
     Dates: start: 20060927, end: 20060927
  28. ISUPREL [Concomitant]
  29. RED BLOOD CELLS [Concomitant]
     Dosage: 4 U
     Route: 042
     Dates: start: 20060928, end: 20060928
  30. CRYOPRECIPITATES [Concomitant]
     Dosage: 20 U
     Dates: start: 20060928, end: 20060928
  31. FACTOR VII [Concomitant]
     Dosage: 14 U, UNK
  32. LASIX [Concomitant]
     Dosage: 40 MG, ONCE

REACTIONS (2)
  - RENAL FAILURE [None]
  - RENAL FAILURE ACUTE [None]
